FAERS Safety Report 22531316 (Version 1)
Quarter: 2023Q2

REPORT INFORMATION
  Report Type: Spontaneous
  Country: CA (occurrence: CA)
  Receive Date: 20230607
  Receipt Date: 20230607
  Transmission Date: 20230722
  Serious: Yes (Other)
  Sender: FDA-Public Use
  Company Number: None

PATIENT
  Age: 77 Year
  Sex: Female
  Weight: 71 kg

DRUGS (3)
  1. CARBOPLATIN [Suspect]
     Active Substance: CARBOPLATIN
     Indication: Product used for unknown indication
     Dosage: SOLUTION INTRAVENOUS
     Route: 065
  2. PACLITAXEL [Suspect]
     Active Substance: PACLITAXEL
     Indication: Product used for unknown indication
     Dosage: LIQUID INTRAVENOUS
     Route: 065
  3. BEVACIZUMAB [Concomitant]
     Active Substance: BEVACIZUMAB
     Indication: Ovarian cancer stage III

REACTIONS (11)
  - Abdominal distension [Unknown]
  - Abdominal pain [Unknown]
  - Adnexa uteri mass [Unknown]
  - Ascites [Unknown]
  - Blood pressure systolic increased [Unknown]
  - Constipation [Unknown]
  - Dyspnoea [Unknown]
  - Neoplasm progression [Unknown]
  - Oedema peripheral [Unknown]
  - Pleural effusion [Unknown]
  - Thrombosis [Unknown]
